FAERS Safety Report 23768632 (Version 4)
Quarter: 2024Q2

REPORT INFORMATION
  Report Type: Report from Study
  Country: GB (occurrence: GB)
  Receive Date: 20240422
  Receipt Date: 20240514
  Transmission Date: 20240716
  Serious: Yes (Other)
  Sender: FDA-Public Use
  Company Number: GB-002147023-NVSC2024GB084115

PATIENT
  Sex: Female

DRUGS (1)
  1. COSENTYX [Suspect]
     Active Substance: SECUKINUMAB
     Indication: Hidradenitis
     Dosage: 300 MG, QMO (LOADING DOSE: WEEK 0,1,2,3,4 - 300MG) (1 PRE-FILLED DISPOSABLE INJECTION)
     Route: 058
     Dates: start: 20240419

REACTIONS (8)
  - Abdominal abscess [Unknown]
  - Abscess [Unknown]
  - Cough [Recovered/Resolved]
  - Pain [Unknown]
  - Malaise [Not Recovered/Not Resolved]
  - Discomfort [Unknown]
  - Nasopharyngitis [Recovered/Resolved]
  - Infection [Unknown]
